FAERS Safety Report 21981808 (Version 1)
Quarter: 2023Q1

REPORT INFORMATION
  Report Type: Report from Study
  Country: US (occurrence: US)
  Receive Date: 20230212
  Receipt Date: 20230212
  Transmission Date: 20230418
  Serious: Yes (Death, Hospitalization, Other)
  Sender: FDA-Public Use
  Company Number: US-ABBVIE-4304419

PATIENT
  Age: 77 Year
  Sex: Male

DRUGS (1)
  1. HUMIRA [Suspect]
     Active Substance: ADALIMUMAB
     Indication: Product used for unknown indication
     Dosage: CITRATE FREE
     Route: 058
     Dates: start: 20190326

REACTIONS (5)
  - Death [Fatal]
  - Cardiac failure [Unknown]
  - Chest pain [Unknown]
  - Pulmonary thrombosis [Unknown]
  - Poor peripheral circulation [Unknown]

NARRATIVE: CASE EVENT DATE: 20220821
